FAERS Safety Report 4353013-2 (Version None)
Quarter: 2004Q2

REPORT INFORMATION
  Report Type: 
  Country: None (occurrence: None)
  Receive Date: 20040429
  Receipt Date: 20040414
  Transmission Date: 20050107
  Serious: Yes (Hospitalization)
  Sender: FDA-Public Use
  Company Number: 193874

PATIENT
  Age: 60 Year
  Sex: Female

DRUGS (4)
  1. AVONEX [Suspect]
     Indication: MULTIPLE SCLEROSIS
     Dosage: 15 MCG QOW IM
     Route: 030
     Dates: start: 20031101, end: 20040301
  2. PANOXIN [Concomitant]
  3. TIAZAC [Concomitant]
  4. PLAVIX [Concomitant]

REACTIONS (4)
  - ANGINA PECTORIS [None]
  - CARDIAC DISORDER [None]
  - HYPOAESTHESIA [None]
  - MYOCARDIAL INFARCTION [None]
